FAERS Safety Report 11493701 (Version 1)
Quarter: 2015Q3

REPORT INFORMATION
  Report Type: Spontaneous
  Country: US (occurrence: None)
  Receive Date: 20150910
  Receipt Date: 20150910
  Transmission Date: 20151125
  Serious: Yes (Hospitalization, Disabling)
  Sender: FDA-Public Use
  Company Number: None

PATIENT
  Age: 68 Year
  Sex: Male
  Weight: 108.86 kg

DRUGS (10)
  1. MYSOLINE [Concomitant]
     Active Substance: PRIMIDONE
  2. SENIOR MULTI-VITAMIN [Concomitant]
  3. MAGNESIUM [Concomitant]
     Active Substance: MAGNESIUM
  4. LACTAID [Concomitant]
     Active Substance: LACTASE
  5. LISINOPRIL. [Concomitant]
     Active Substance: LISINOPRIL
  6. CIPROFLOXACIN HCL [Suspect]
     Active Substance: CIPROFLOXACIN HYDROCHLORIDE
     Indication: PROSTATISM
     Dosage: 1 TAB, TWICE DAILY TAKEN BY MOUTH
     Route: 048
  7. IBUPROFEN. [Concomitant]
     Active Substance: IBUPROFEN
  8. CPAP [Concomitant]
     Active Substance: DEVICE
  9. IBUPROFEN. [Concomitant]
     Active Substance: IBUPROFEN
  10. PROBIOTIC [Concomitant]
     Active Substance: PROBIOTICS NOS

REACTIONS (2)
  - Tendonitis [None]
  - Arthralgia [None]

NARRATIVE: CASE EVENT DATE: 20150904
